FAERS Safety Report 8225095-9 (Version None)
Quarter: 2012Q1

REPORT INFORMATION
  Report Type: 
  Country: None (occurrence: None)
  Receive Date: 20120321
  Receipt Date: 20120316
  Transmission Date: 20120608
  Serious: Yes (Hospitalization)
  Sender: FDA-Public Use
  Company Number: PHHO2012FR004386

PATIENT
  Sex: Female
  Weight: 53 kg

DRUGS (1)
  1. EVEROLIMUS [Suspect]
     Indication: LYMPHANGIOLEIOMYOMATOSIS
     Dosage: 10 MG, QD
     Route: 048
     Dates: start: 20110630, end: 20120307

REACTIONS (2)
  - PLEURISY [None]
  - DYSPNOEA [None]
